FAERS Safety Report 7819631-1 (Version None)
Quarter: 2011Q4

REPORT INFORMATION
  Report Type: 
  Country: None (occurrence: None)
  Receive Date: 20111018
  Receipt Date: 20111004
  Transmission Date: 20120403
  Serious: Yes (Other)
  Sender: FDA-Public Use
  Company Number: US-MYLANLABS-2011S1021036

PATIENT
  Age: 18 Year
  Sex: Male

DRUGS (1)
  1. TRAMADOL HCL [Suspect]
     Indication: DRUG ABUSE
     Route: 065

REACTIONS (3)
  - RHABDOMYOLYSIS [None]
  - DRUG ABUSE [None]
  - RENAL FAILURE ACUTE [None]
